FAERS Safety Report 4788875-8 (Version None)
Quarter: 2005Q4

REPORT INFORMATION
  Report Type: 
  Country: None (occurrence: None)
  Receive Date: 20051004
  Receipt Date: 20050923
  Transmission Date: 20060501
  Serious: Yes (Disabling)
  Sender: FDA-Public Use
  Company Number: 2005134030

PATIENT
  Age: 50 Year
  Sex: Female

DRUGS (1)
  1. AROMASIN [Suspect]
     Indication: BREAST CANCER
     Dosage: (25 MG, OD), ORAL
     Route: 048
     Dates: start: 20040801, end: 20050801

REACTIONS (1)
  - NEUROPATHY PERIPHERAL [None]
